FAERS Safety Report 6377872-7 (Version None)
Quarter: 2009Q3

REPORT INFORMATION
  Report Type: 
  Country: None (occurrence: None)
  Receive Date: 20090925
  Receipt Date: 20090914
  Transmission Date: 20100115
  Serious: Yes (Other)
  Sender: FDA-Public Use
  Company Number: PHEH2009US10894

PATIENT
  Sex: Female

DRUGS (6)
  1. RECLAST [Suspect]
     Dosage: UNK
     Route: 042
     Dates: start: 20090909
  2. LIPITOR [Concomitant]
  3. ALTACE [Concomitant]
  4. ENABLEX [Concomitant]
  5. ASPIRIN [Concomitant]
     Dosage: 81 MG, UNK
  6. HYDROCHLOROTHIAZIDE [Concomitant]

REACTIONS (7)
  - ARTHRALGIA [None]
  - BACK PAIN [None]
  - CHILLS [None]
  - MONOPLEGIA [None]
  - MYALGIA [None]
  - PAIN [None]
  - PYREXIA [None]
